FAERS Safety Report 20143451 (Version 1)
Quarter: 2021Q4

REPORT INFORMATION
  Report Type: Spontaneous
  Country: US (occurrence: US)
  Receive Date: 20211203
  Receipt Date: 20211203
  Transmission Date: 20220303
  Serious: Yes (Other)
  Sender: FDA-Public Use
  Company Number: US-SPECGX-T202102616

PATIENT

DRUGS (1)
  1. METHYLPHENIDATE HYDROCHLORIDE [Suspect]
     Active Substance: METHYLPHENIDATE HYDROCHLORIDE
     Indication: Attention deficit hyperactivity disorder
     Dosage: 10 MILLIGRAM
     Route: 065

REACTIONS (5)
  - Suicidal behaviour [Unknown]
  - Migraine [Unknown]
  - Diarrhoea [Unknown]
  - Palpitations [Unknown]
  - Drug ineffective [Unknown]
